FAERS Safety Report 16814844 (Version 1)
Quarter: 2019Q3

REPORT INFORMATION
  Report Type: Spontaneous
  Country: JP (occurrence: JP)
  Receive Date: 20190917
  Receipt Date: 20190917
  Transmission Date: 20191005
  Serious: Yes (Other)
  Sender: FDA-Public Use
  Company Number: PHHY2019JP212420

PATIENT
  Age: 62 Year
  Sex: Male

DRUGS (1)
  1. METHOTREXATE. [Suspect]
     Active Substance: METHOTREXATE
     Indication: RHEUMATOID ARTHRITIS
     Dosage: UNK
     Route: 065

REACTIONS (5)
  - Metastases to liver [Recovered/Resolved]
  - Metastases to adrenals [Recovered/Resolved]
  - Angioimmunoblastic T-cell lymphoma stage IV [Recovered/Resolved]
  - Epstein-Barr virus infection [Unknown]
  - Metastases to spleen [Recovered/Resolved]
